FAERS Safety Report 5833084-4 (Version None)
Quarter: 2008Q3

REPORT INFORMATION
  Report Type: 
  Country: None (occurrence: None)
  Receive Date: 20080801
  Receipt Date: 20080801
  Transmission Date: 20090109
  Serious: Yes (Other)
  Sender: FDA-Public Use
  Company Number: None

PATIENT
  Age: 18 Year
  Sex: Female

DRUGS (1)
  1. TUBERSOL [Suspect]
     Route: 023

REACTIONS (3)
  - DIZZINESS [None]
  - DYSKINESIA [None]
  - INCONTINENCE [None]
